FAERS Safety Report 7326156-9 (Version None)
Quarter: 2011Q1

REPORT INFORMATION
  Report Type: 
  Country: None (occurrence: None)
  Receive Date: 20110302
  Receipt Date: 20110218
  Transmission Date: 20110831
  Serious: Yes (Death, Hospitalization)
  Sender: FDA-Public Use
  Company Number: DE-ROCHE-762816

PATIENT
  Sex: Male

DRUGS (1)
  1. CAPECITABINE [Suspect]
     Route: 048
     Dates: start: 20101112, end: 20101125

REACTIONS (2)
  - ABDOMINAL PAIN [None]
  - GENERAL PHYSICAL HEALTH DETERIORATION [None]
